FAERS Safety Report 17719570 (Version 1)
Quarter: 2020Q2

REPORT INFORMATION
  Report Type: Spontaneous
  Country: US (occurrence: US)
  Receive Date: 20200428
  Receipt Date: 20200428
  Transmission Date: 20200714
  Serious: No
  Sender: FDA-Public Use
  Company Number: US-VERTEX PHARMACEUTICALS-2020-009486

PATIENT
  Sex: Male
  Weight: 27 kg

DRUGS (1)
  1. TRIKAFTA [Suspect]
     Active Substance: ELEXACAFTOR\IVACAFTOR\TEZACAFTOR
     Indication: CYSTIC FIBROSIS
     Dosage: 100MG ELEXACAFTOR/50MG TEZACAFTOR/ 75MG IVACAFTOR)2 ORANGE TABS;  150MG IVACAFTOR)1 BLUE TAB PM
     Route: 048
     Dates: start: 20200415

REACTIONS (1)
  - Off label use [Unknown]
